FAERS Safety Report 11512705 (Version 1)
Quarter: 2015Q3

REPORT INFORMATION
  Report Type: Spontaneous
  Country: US (occurrence: None)
  Receive Date: 20150915
  Receipt Date: 20150915
  Transmission Date: 20151125
  Serious: No
  Sender: FDA-Public Use
  Company Number: None

PATIENT
  Age: 38 Year
  Sex: Female
  Weight: 54.43 kg

DRUGS (9)
  1. SERTRALINE [Concomitant]
     Active Substance: SERTRALINE HYDROCHLORIDE
  2. METRONIDAZOLE 500 MG. PLIVA INC. [Suspect]
     Active Substance: METRONIDAZOLE
     Indication: GASTROINTESTINAL INFECTION
     Route: 048
     Dates: start: 20150818, end: 20150820
  3. LEVOLFLOXACIN 750 MG. DR. REDDY^S LAB [Suspect]
     Active Substance: LEVOFLOXACIN
     Indication: COLONIC ABSCESS
     Route: 048
     Dates: start: 20150818, end: 20150820
  4. OMEPRAZOLE. [Concomitant]
     Active Substance: OMEPRAZOLE
  5. IRON/VITA,OM B12 SUPPLEMENT [Concomitant]
  6. METRONIDAZOLE 500 MG. PLIVA INC. [Suspect]
     Active Substance: METRONIDAZOLE
     Indication: COLONIC ABSCESS
     Route: 048
     Dates: start: 20150818, end: 20150820
  7. PROBIOTICS-FLORJEN [Concomitant]
  8. LEVOLFLOXACIN 750 MG. DR. REDDY^S LAB [Suspect]
     Active Substance: LEVOFLOXACIN
     Indication: INFECTION
     Route: 048
     Dates: start: 20150818, end: 20150820
  9. CALCIUM/VITAMIN D/MAGNESIUM SUPPLEMENT [Concomitant]

REACTIONS (22)
  - Palpitations [None]
  - Dry mouth [None]
  - Illusion [None]
  - Paraesthesia [None]
  - Asthenia [None]
  - Tendon disorder [None]
  - Pain in extremity [None]
  - Muscle fatigue [None]
  - Hypoaesthesia [None]
  - Skin lesion [None]
  - Nightmare [None]
  - Fatigue [None]
  - Balance disorder [None]
  - Peripheral coldness [None]
  - Dysgeusia [None]
  - Abdominal discomfort [None]
  - Visual impairment [None]
  - Gait disturbance [None]
  - Muscular weakness [None]
  - Arthralgia [None]
  - Tendon pain [None]
  - Insomnia [None]

NARRATIVE: CASE EVENT DATE: 20150818
